FAERS Safety Report 11575478 (Version 1)
Quarter: 2015Q3

REPORT INFORMATION
  Report Type: Spontaneous
  Country: US (occurrence: US)
  Receive Date: 20150930
  Receipt Date: 20150930
  Transmission Date: 20151125
  Serious: Yes (Other)
  Sender: FDA-Public Use
  Company Number: US-BIOGENIDEC-2015BI129687

PATIENT
  Age: 75 Year
  Sex: Female

DRUGS (1)
  1. AVONEX [Suspect]
     Active Substance: INTERFERON BETA-1A
     Indication: MULTIPLE SCLEROSIS
     Route: 030
     Dates: start: 20101004

REACTIONS (7)
  - Intervertebral disc protrusion [Unknown]
  - Seizure [Unknown]
  - Nasal oedema [Unknown]
  - Stress [Unknown]
  - Fall [Recovered/Resolved]
  - Visual impairment [Unknown]
  - Epilepsy [Unknown]

NARRATIVE: CASE EVENT DATE: 201509
